FAERS Safety Report 8608328-6 (Version None)
Quarter: 2012Q3

REPORT INFORMATION
  Report Type: 
  Country: None (occurrence: None)
  Receive Date: 20120821
  Receipt Date: 20120817
  Transmission Date: 20120928
  Serious: No
  Sender: FDA-Public Use
  Company Number: US-TEVA-354713USA

PATIENT
  Sex: Female
  Weight: 70.824 kg

DRUGS (1)
  1. PLAN B ONE-STEP [Suspect]
     Indication: POST COITAL CONTRACEPTION
     Dosage: 1.5 MILLIGRAM DAILY;
     Route: 048
     Dates: start: 20120715, end: 20120715

REACTIONS (3)
  - BREAST TENDERNESS [None]
  - MENSTRUATION IRREGULAR [None]
  - MENORRHAGIA [None]
